FAERS Safety Report 7346451-7 (Version None)
Quarter: 2011Q1

REPORT INFORMATION
  Report Type: 
  Country: None (occurrence: None)
  Receive Date: 20110311
  Receipt Date: 20110309
  Transmission Date: 20110831
  Serious: Yes (Other)
  Sender: FDA-Public Use
  Company Number: US-ABBOTT-11P-163-0710465-00

PATIENT
  Age: 36 Year
  Sex: Female
  Weight: 52 kg

DRUGS (7)
  1. TOPAMAX [Concomitant]
     Indication: MIGRAINE
  2. SYNTHROID [Suspect]
     Indication: HYPOTHYROIDISM
  3. VITAMIN B-12 [Concomitant]
     Indication: PRODUCT USED FOR UNKNOWN INDICATION
  4. ASCORBIC ACID [Concomitant]
     Indication: PRODUCT USED FOR UNKNOWN INDICATION
  5. CHANTIX [Suspect]
     Indication: SMOKING CESSATION THERAPY
     Route: 048
     Dates: start: 20101009
  6. PRILOSEC [Concomitant]
     Indication: ULCER
  7. ATRIPLA [Concomitant]
     Indication: HIV INFECTION

REACTIONS (2)
  - PHARYNGEAL OEDEMA [None]
  - INCORRECT DOSE ADMINISTERED [None]
